FAERS Safety Report 21409971 (Version 1)
Quarter: 2022Q4

REPORT INFORMATION
  Report Type: Spontaneous
  Country: VN (occurrence: VN)
  Receive Date: 20221005
  Receipt Date: 20221005
  Transmission Date: 20230113
  Serious: Yes (Other)
  Sender: FDA-Public Use
  Company Number: VN-NOVARTISPH-NVSC2022VN221786

PATIENT
  Sex: Female

DRUGS (1)
  1. FEMARA [Suspect]
     Active Substance: LETROZOLE
     Indication: Breast cancer
     Dosage: 2.5 MG, QD (3X10)
     Route: 048
     Dates: start: 202101, end: 202207

REACTIONS (4)
  - Osteonecrosis of jaw [Unknown]
  - Pain in jaw [Not Recovered/Not Resolved]
  - Dental caries [Unknown]
  - Gingival ulceration [Unknown]

NARRATIVE: CASE EVENT DATE: 20210701
